FAERS Safety Report 18051913 (Version 3)
Quarter: 2020Q3

REPORT INFORMATION
  Report Type: Spontaneous
  Country: US (occurrence: US)
  Receive Date: 20200721
  Receipt Date: 20200810
  Transmission Date: 20201103
  Serious: Yes (Death, Other)
  Sender: FDA-Public Use
  Company Number: US-PFIZER INC-2020277145

PATIENT
  Age: 72 Year
  Sex: Female

DRUGS (1)
  1. XELJANZ XR [Suspect]
     Active Substance: TOFACITINIB CITRATE
     Dosage: 11 MG

REACTIONS (4)
  - Gastrointestinal neoplasm [Unknown]
  - Decreased appetite [Unknown]
  - Intestinal obstruction [Unknown]
  - Death [Fatal]

NARRATIVE: CASE EVENT DATE: 20200712
